FAERS Safety Report 17661582 (Version 1)
Quarter: 2020Q2

REPORT INFORMATION
  Report Type: Spontaneous
  Country: US (occurrence: US)
  Receive Date: 20200413
  Receipt Date: 20200413
  Transmission Date: 20200713
  Serious: Yes (Hospitalization)
  Sender: FDA-Public Use
  Company Number: US-SA-2020SA094124

PATIENT
  Sex: Male
  Weight: 78.01 kg

DRUGS (5)
  1. TOPROL XL [Concomitant]
     Active Substance: METOPROLOL SUCCINATE
  2. ISOSORBIDE. [Concomitant]
     Active Substance: ISOSORBIDE
  3. CLOPIDOGREL BISULFATE. [Suspect]
     Active Substance: CLOPIDOGREL BISULFATE
     Dosage: UNK MG
     Route: 065
  4. RANEXA [Concomitant]
     Active Substance: RANOLAZINE
  5. ASA [Concomitant]
     Active Substance: ASPIRIN

REACTIONS (3)
  - Dizziness [Unknown]
  - Malaise [Unknown]
  - Vomiting [Unknown]
